FAERS Safety Report 23185745 (Version 1)
Quarter: 2023Q4

REPORT INFORMATION
  Report Type: Spontaneous
  Country: US (occurrence: US)
  Receive Date: 20231115
  Receipt Date: 20231115
  Transmission Date: 20240110
  Serious: Yes (Other)
  Sender: FDA-Public Use
  Company Number: US-MYLANLABS-2023M1121402

PATIENT
  Age: 21 Year
  Sex: Female

DRUGS (1)
  1. METHOTREXATE [Suspect]
     Active Substance: METHOTREXATE
     Indication: Metastatic cutaneous Crohn^s disease
     Dosage: 15 MILLIGRAM, QW
     Route: 065

REACTIONS (3)
  - Transaminases increased [Unknown]
  - Fatigue [Unknown]
  - Off label use [Unknown]
